FAERS Safety Report 6915851-9 (Version None)
Quarter: 2010Q3

REPORT INFORMATION
  Report Type: 
  Country: None (occurrence: None)
  Receive Date: 20100804
  Receipt Date: 20100723
  Transmission Date: 20110219
  Serious: Yes (Hospitalization, Other)
  Sender: FDA-Public Use
  Company Number: 2010AP001383

PATIENT
  Age: 83 Year
  Sex: Female

DRUGS (6)
  1. CITALOPRAM HYDROBROMIDE [Suspect]
     Indication: DEPRESSION
     Dosage: 20 MG;QD
  2. CARBASALATE CALCIUM (CARBASALATE CALCIUM) [Concomitant]
  3. CARBAMAZEPINE [Concomitant]
  4. LEVETIRACETAM [Concomitant]
  5. CALCIUM CARBONATE [Concomitant]
  6. ALENDRONIC ACID (ALENDRONIC ACID) [Concomitant]

REACTIONS (9)
  - BLOOD PRESSURE INCREASED [None]
  - CONFUSIONAL STATE [None]
  - FALL [None]
  - FATIGUE [None]
  - HAEMANGIOMA [None]
  - HEPATITIS [None]
  - HEPATOTOXICITY [None]
  - LIVER PALPABLE SUBCOSTAL [None]
  - VIRAL INFECTION [None]
